FAERS Safety Report 8218703-X (Version None)
Quarter: 2012Q1

REPORT INFORMATION
  Report Type: 
  Country: None (occurrence: None)
  Receive Date: 20120319
  Receipt Date: 20120309
  Transmission Date: 20120608
  Serious: Yes (Hospitalization)
  Sender: FDA-Public Use
  Company Number: PHHY2012FR003430

PATIENT
  Sex: Male
  Weight: 20.2 kg

DRUGS (6)
  1. VANCOMYCIN [Concomitant]
     Dosage: UNK UKN, UNK
     Dates: start: 20111224, end: 20111230
  2. FLAGYL [Concomitant]
     Dosage: UNK UKN, UNK
     Dates: start: 20120116
  3. VANCOMYCIN [Concomitant]
     Dosage: UNK UKN, UNK
     Dates: start: 20111209, end: 20111213
  4. FLAGYL [Concomitant]
     Dosage: UNK UKN, UNK
     Dates: start: 20111209
  5. TEGRETOL [Suspect]
     Dosage: UNK UKN, UNK
     Route: 048
     Dates: start: 20111211, end: 20111229
  6. CLAFORAN [Suspect]
     Dosage: 4 G, DAILY
     Route: 042
     Dates: start: 20111209, end: 20111229

REACTIONS (7)
  - LYMPHADENOPATHY [None]
  - PYREXIA [None]
  - ANGINA PECTORIS [None]
  - LYMPHOPENIA [None]
  - AGRANULOCYTOSIS [None]
  - WHITE BLOOD CELL COUNT INCREASED [None]
  - PLATELET COUNT DECREASED [None]
